FAERS Safety Report 9101927 (Version 1)
Quarter: 2013Q1

REPORT INFORMATION
  Report Type: Spontaneous
  Country: US (occurrence: US)
  Receive Date: 20130218
  Receipt Date: 20130218
  Transmission Date: 20140127
  Serious: No
  Sender: FDA-Public Use
  Company Number: US-009507513-1302USA007321

PATIENT
  Sex: Female

DRUGS (6)
  1. NASONEX [Suspect]
     Indication: SINUS CONGESTION
     Dosage: 50 MICROGRAM/2 PUFFS, BID
     Route: 055
     Dates: end: 201212
  2. DIOVAN [Concomitant]
  3. ALTACE [Concomitant]
  4. LEXAPRO [Concomitant]
  5. VITAMIN D (UNSPECIFIED) [Concomitant]
  6. UBIDECARENONE [Concomitant]

REACTIONS (1)
  - Vertigo [Recovered/Resolved]
